FAERS Safety Report 8288407-6 (Version None)
Quarter: 2012Q2

REPORT INFORMATION
  Report Type: 
  Country: None (occurrence: None)
  Receive Date: 20120416
  Receipt Date: 20120403
  Transmission Date: 20120825
  Serious: Yes (Hospitalization)
  Sender: FDA-Public Use
  Company Number: GB-BAXTER-2012BAX002086

PATIENT
  Age: 5 Year
  Sex: Male

DRUGS (1)
  1. ADVATE [Suspect]
     Route: 065
     Dates: start: 20090101

REACTIONS (3)
  - CHILLS [None]
  - STAPHYLOCOCCAL INFECTION [None]
  - TREMOR [None]
